FAERS Safety Report 13366629 (Version 2)
Quarter: 2017Q2

REPORT INFORMATION
  Report Type: Spontaneous
  Country: US (occurrence: US)
  Receive Date: 20170323
  Receipt Date: 20170612
  Transmission Date: 20170830
  Serious: Yes (Hospitalization)
  Sender: FDA-Public Use
  Company Number: US-BAUSCH-BL-2017-007589

PATIENT
  Age: 49 Year
  Sex: Male

DRUGS (1)
  1. DESMOPRESSIN ACETATE NASAL SOLUTION 0.01% [Suspect]
     Active Substance: DESMOPRESSIN ACETATE
     Indication: DIABETES INSIPIDUS
     Dosage: ONE SPRAY IN THE MORNING AND ONE IN THE NIGHT.

REACTIONS (3)
  - Drug ineffective [Not Recovered/Not Resolved]
  - Drug dose omission [Unknown]
  - Hospitalisation [Unknown]

NARRATIVE: CASE EVENT DATE: 1990
